FAERS Safety Report 16640316 (Version 1)
Quarter: 2019Q3

REPORT INFORMATION
  Report Type: Report from Study
  Country: KR (occurrence: KR)
  Receive Date: 20190728
  Receipt Date: 20190728
  Transmission Date: 20191004
  Serious: Yes (Other)
  Sender: FDA-Public Use
  Company Number: KR-CELLTRION INC.-2019KR022949

PATIENT

DRUGS (1)
  1. REMSIMA [Suspect]
     Active Substance: INFLIXIMAB
     Indication: RHEUMATOID ARTHRITIS
     Dosage: UNK
     Dates: end: 20190514

REACTIONS (3)
  - Shoulder arthroplasty [Recovered/Resolved]
  - Hip arthroplasty [Recovered/Resolved]
  - Knee arthroplasty [Recovered/Resolved]
